FAERS Safety Report 7780423-3 (Version None)
Quarter: 2011Q3

REPORT INFORMATION
  Report Type: 
  Country: None (occurrence: None)
  Receive Date: 20110927
  Receipt Date: 20110628
  Transmission Date: 20111222
  Serious: No
  Sender: FDA-Public Use
  Company Number: US-ASTRAZENECA-2011SE38903

PATIENT
  Age: 55 Year
  Sex: Female
  Weight: 54.4 kg

DRUGS (10)
  1. LYRICA [Concomitant]
  2. NEXIUM [Concomitant]
  3. ADVAIR DISKUS 100/50 [Concomitant]
  4. SINUS IRRIGATION [Concomitant]
  5. VICODIN [Concomitant]
  6. NASONEX [Concomitant]
  7. SEROQUEL [Suspect]
     Indication: BIPOLAR DISORDER
     Route: 048
     Dates: start: 20100101
  8. CELEXA [Concomitant]
  9. LEVSIN [Concomitant]
  10. TOPAMAX [Concomitant]

REACTIONS (3)
  - SOMNOLENCE [None]
  - PHARYNGITIS [None]
  - EAR INFECTION [None]
